FAERS Safety Report 12535216 (Version 2)
Quarter: 2016Q3

REPORT INFORMATION
  Report Type: Report from Study
  Country: MX (occurrence: MX)
  Receive Date: 20160707
  Receipt Date: 20160708
  Transmission Date: 20161109
  Serious: Yes (Other)
  Sender: FDA-Public Use
  Company Number: MX-UCBSA-2016024921

PATIENT
  Sex: Male
  Weight: 82 kg

DRUGS (14)
  1. OMEPRAZOLE. [Concomitant]
     Active Substance: OMEPRAZOLE
     Indication: PROPHYLAXIS
     Dosage: 20 MG/12 HRS
  2. ARNICA [Concomitant]
     Active Substance: ARNICA MONTANA FLOWER
     Indication: IRRITABILITY
  3. ROTIGOTINE [Suspect]
     Active Substance: ROTIGOTINE
     Dosage: 6 MG, ONCE DAILY (QD)
     Route: 062
     Dates: end: 2014
  4. ROTIGOTINE [Suspect]
     Active Substance: ROTIGOTINE
     Dosage: 8 MG, ONCE DAILY (QD) (2 PATCHES OF 4MG)
     Route: 062
     Dates: start: 201412
  5. CARBIDOPA W/ENTACAPONE/LEVODOPA [Concomitant]
     Active Substance: CARBIDOPA\ENTACAPONE\LEVODOPA
     Indication: PARKINSON^S DISEASE
     Dosage: 100MG/25MG/200MG (1 TABLET/8 HRS)
     Dates: start: 2005
  6. METFORMIN [Concomitant]
     Active Substance: METFORMIN HYDROCHLORIDE
     Indication: BLOOD GLUCOSE INCREASED
     Dosage: 500 MG/24 HRS
     Dates: start: 2008
  7. AMANTADINE [Concomitant]
     Active Substance: AMANTADINE
     Indication: PARKINSON^S DISEASE
     Dosage: 100MG/8 HRS
     Dates: start: 2005
  8. CARBIDOPA W/LEVODOPA [Concomitant]
     Active Substance: CARBIDOPA\LEVODOPA
     Indication: PARKINSON^S DISEASE
     Dosage: 250MG/25MG (? OF A TABLET/8 HRS)
     Dates: start: 2005
  9. ALFUZOSIN [Concomitant]
     Active Substance: ALFUZOSIN
     Indication: BENIGN PROSTATIC HYPERPLASIA
     Dosage: 10 MG/24 HRS
     Dates: start: 2007
  10. THIOCTIC ACID [Concomitant]
     Active Substance: THIOCTIC ACID
     Indication: PARKINSON^S DISEASE
     Dosage: 600 MG, 3X/WEEK
     Dates: start: 2008
  11. ROTIGOTINE [Suspect]
     Active Substance: ROTIGOTINE
     Indication: PARKINSON^S DISEASE
     Dosage: 4 MG, ONCE DAILY (QD)
     Route: 062
     Dates: start: 2012
  12. LOSARTAN AND HYDROCHLOROTHIAZIDE [Concomitant]
     Active Substance: HYDROCHLOROTHIAZIDE\LOSARTAN POTASSIUM
     Indication: UNEVALUABLE EVENT
     Dosage: 1 UNK, ONCE DAILY (QD) (50MG/12.5MG (1 TABLETA/24 HRS)
     Dates: start: 2006
  13. GABAPENTIN. [Concomitant]
     Active Substance: GABAPENTIN
     Indication: PARKINSON^S DISEASE
     Dosage: (300 MG/ 24 HRS)
     Dates: start: 2005
  14. SERTRALINE [Concomitant]
     Active Substance: SERTRALINE HYDROCHLORIDE
     Indication: ANXIETY
     Dosage: (50 MG / 24 HRS)
     Dates: start: 2004

REACTIONS (4)
  - Cerebrovascular accident [Recovered/Resolved]
  - General physical health deterioration [Unknown]
  - Depression [Recovered/Resolved]
  - Application site irritation [Not Recovered/Not Resolved]
